FAERS Safety Report 9060660 (Version 2)
Quarter: 2013Q4

REPORT INFORMATION
  Report Type: Report from Study
  Country: US (occurrence: US)
  Receive Date: 20130204
  Receipt Date: 20131011
  Transmission Date: 20140711
  Serious: Yes (Life-Threatening, Hospitalization)
  Sender: FDA-Public Use
  Company Number: US-009507513-1212USA010668

PATIENT
  Age: 68 Year
  Sex: Male
  Weight: 100.6 kg

DRUGS (12)
  1. BLINDED AZACITIDINE [Suspect]
     Indication: MYELODYSPLASTIC SYNDROME
     Dosage: 300 MG PO BID ON DAYS 3-9, CYCLE=28
     Route: 048
     Dates: start: 20121010, end: 20121016
  2. BLINDED LENALIDOMIDE [Suspect]
     Indication: MYELODYSPLASTIC SYNDROME
     Dosage: 300 MG PO BID ON DAYS 3-9, CYCLE=28
     Route: 048
     Dates: start: 20121010, end: 20121016
  3. BLINDED POST TRIAL THERAPY [Suspect]
     Indication: MYELODYSPLASTIC SYNDROME
     Dosage: 300 MG PO BID ON DAYS 3-9, CYCLE=28
     Route: 048
     Dates: start: 20121010, end: 20121016
  4. BLINDED PRE TRIAL THERAPY [Suspect]
     Indication: MYELODYSPLASTIC SYNDROME
     Dosage: 300 MG PO BID ON DAYS 3-9, CYCLE=28
     Route: 048
     Dates: start: 20121010, end: 20121016
  5. BLINDED VORINOSTAT [Suspect]
     Indication: MYELODYSPLASTIC SYNDROME
     Dosage: 300 MG PO BID ON DAYS 3-9, CYCLE=28
     Route: 048
     Dates: start: 20121010, end: 20121016
  6. BLINDED AZACITIDINE [Suspect]
     Dosage: 300 MG PO BID ON DAYS 3-9, CYCLE=28
     Route: 048
     Dates: start: 20121115, end: 20121121
  7. BLINDED LENALIDOMIDE [Suspect]
     Dosage: 300 MG PO BID ON DAYS 3-9, CYCLE=28
     Route: 048
     Dates: start: 20121115, end: 20121121
  8. BLINDED POST TRIAL THERAPY [Suspect]
     Dosage: 300 MG PO BID ON DAYS 3-9, CYCLE=28
     Route: 048
     Dates: start: 20121115, end: 20121121
  9. BLINDED PRE TRIAL THERAPY [Suspect]
     Dosage: 300 MG PO BID ON DAYS 3-9, CYCLE=28
     Route: 048
     Dates: start: 20121115, end: 20121121
  10. BLINDED VORINOSTAT [Suspect]
     Dosage: 300 MG PO BID ON DAYS 3-9, CYCLE=28
     Route: 048
     Dates: start: 20121115, end: 20121121
  11. AZACITIDINE [Suspect]
     Indication: MYELODYSPLASTIC SYNDROME
     Dosage: 75 MG/M2, SQ OR IV ON DAYS 1-7
     Dates: start: 20121008
  12. AZACITIDINE [Suspect]
     Dosage: 75 MG/M2 SQ OR IV ON DAYS 1-7 OR ON DAYS 1-5 AND DAYS 8-9, CYCLE=28 DAYS
     Dates: start: 20121113, end: 20121121

REACTIONS (2)
  - Pleural effusion [Not Recovered/Not Resolved]
  - Respiratory failure [Not Recovered/Not Resolved]
